FAERS Safety Report 12293962 (Version 3)
Quarter: 2016Q2

REPORT INFORMATION
  Report Type: Spontaneous
  Country: IT (occurrence: IT)
  Receive Date: 20160422
  Receipt Date: 20160502
  Transmission Date: 20160815
  Serious: Yes (Other)
  Sender: FDA-Public Use
  Company Number: IT-ROCHE-1746011

PATIENT
  Age: 64 Year
  Sex: Female
  Weight: 65 kg

DRUGS (2)
  1. SOVALDI [Interacting]
     Active Substance: SOFOSBUVIR
     Indication: HEPATITIS C
     Dosage: MOST RECENT DOSE: 15/APR/2016
     Route: 048
     Dates: start: 20160321
  2. RIBAVIRIN. [Suspect]
     Active Substance: RIBAVIRIN
     Indication: HEPATITIS C
     Route: 048
     Dates: start: 20160321, end: 20160413

REACTIONS (2)
  - Anaemia [Unknown]
  - Drug interaction [Unknown]

NARRATIVE: CASE EVENT DATE: 20160404
